FAERS Safety Report 17688208 (Version 1)
Quarter: 2020Q2

REPORT INFORMATION
  Report Type: Spontaneous
  Country: US (occurrence: US)
  Receive Date: 20200420
  Receipt Date: 20200420
  Transmission Date: 20200714
  Serious: Yes (Disabling)
  Sender: FDA-Public Use
  Company Number: None

PATIENT
  Age: 71 Year
  Sex: Female
  Weight: 78.75 kg

DRUGS (4)
  1. AMLODIPINE BESYLATE 2.5MG TABLETS MFG LUPIN GENERIC FOR NORVASC [Suspect]
     Active Substance: AMLODIPINE BESYLATE
     Indication: BLOOD PRESSURE MEASUREMENT
     Dosage: ?          QUANTITY:1 TABLET(S);?
     Route: 048
     Dates: start: 20200416, end: 20200417
  2. LOSARTAN 100MG [Concomitant]
     Active Substance: LOSARTAN
  3. NATURE MADE 50MCG VITAMIN D3 [Concomitant]
  4. ALIVE WOMEN^S 50+ GUMMY VITAMINS [Concomitant]

REACTIONS (8)
  - Product substitution issue [None]
  - Blood pressure increased [None]
  - Deafness [None]
  - Drug ineffective [None]
  - Vertigo [None]
  - Palpitations [None]
  - Weight increased [None]
  - Alopecia [None]

NARRATIVE: CASE EVENT DATE: 20200416
